FAERS Safety Report 23809083 (Version 3)
Quarter: 2025Q3

REPORT INFORMATION
  Report Type: Spontaneous
  Country: EU (occurrence: EU)
  Receive Date: 20240502
  Receipt Date: 20250803
  Transmission Date: 20251020
  Serious: Yes (Other)
  Sender: ALEXION PHARMACEUTICALS
  Company Number: None

PATIENT
  Age: 41 Year
  Sex: Male

DRUGS (4)
  1. QUETIAPINE [Suspect]
     Active Substance: QUETIAPINE
     Indication: Schizophrenia
  2. MIDOMAFETAMINE [Suspect]
     Active Substance: MIDOMAFETAMINE
  3. HEROIN [Suspect]
     Active Substance: DIAMORPHINE
     Route: 065
  4. COCAINE [Suspect]
     Active Substance: COCAINE

REACTIONS (2)
  - Drug use disorder [Unknown]
  - Toxicity to various agents [Unknown]

NARRATIVE: CASE EVENT DATE: 20240301
